FAERS Safety Report 10167216 (Version 1)
Quarter: 2014Q2

REPORT INFORMATION
  Report Type: Spontaneous
  Country: US (occurrence: US)
  Receive Date: 20140512
  Receipt Date: 20140512
  Transmission Date: 20141212
  Serious: No
  Sender: FDA-Public Use
  Company Number: US-PFIZER INC-2014129502

PATIENT
  Sex: Female

DRUGS (1)
  1. PRISTIQ [Suspect]
     Dosage: 150 MG, UNK

REACTIONS (4)
  - Nausea [Unknown]
  - Insomnia [Unknown]
  - Feeling jittery [Unknown]
  - Mydriasis [Unknown]
